FAERS Safety Report 6246600-8 (Version None)
Quarter: 2009Q2

REPORT INFORMATION
  Report Type: 
  Country: None (occurrence: None)
  Receive Date: 20090626
  Receipt Date: 20090616
  Transmission Date: 20091009
  Serious: Yes (Hospitalization)
  Sender: FDA-Public Use
  Company Number: GB-PFIZER INC-2009230627

PATIENT

DRUGS (1)
  1. SOMATROPIN [Suspect]
     Dosage: UNK

REACTIONS (1)
  - ABDOMINAL PAIN [None]
